FAERS Safety Report 10248395 (Version 1)
Quarter: 2014Q2

REPORT INFORMATION
  Report Type: Report from Study
  Country: US (occurrence: US)
  Receive Date: 20140620
  Receipt Date: 20140620
  Transmission Date: 20141212
  Serious: Yes (Hospitalization)
  Sender: FDA-Public Use
  Company Number: US-BIOGENIDEC-2014BI057769

PATIENT
  Age: 43 Year
  Sex: Female

DRUGS (1)
  1. AVONEX [Suspect]
     Indication: MULTIPLE SCLEROSIS
     Route: 030
     Dates: start: 201401

REACTIONS (4)
  - Adrenal insufficiency [Recovered/Resolved]
  - Infection [Not Recovered/Not Resolved]
  - Hypotension [Recovered/Resolved]
  - Muscle spasms [Not Recovered/Not Resolved]
